FAERS Safety Report 21555274 (Version 1)
Quarter: 2022Q4

REPORT INFORMATION
  Report Type: Spontaneous
  Country: AR (occurrence: AR)
  Receive Date: 20221104
  Receipt Date: 20221104
  Transmission Date: 20230112
  Serious: No
  Sender: FDA-Public Use
  Company Number: AR-PFIZER INC-PV202200083109

PATIENT
  Age: 64 Year
  Sex: Male

DRUGS (2)
  1. ENBREL [Suspect]
     Active Substance: ETANERCEPT
     Indication: Rheumatoid arthritis
     Dosage: 50 MG, WEEKLY
     Dates: start: 20170908
  2. ETANERCEPT [Suspect]
     Active Substance: ETANERCEPT

REACTIONS (5)
  - Condition aggravated [Unknown]
  - Injection site pain [Unknown]
  - Contusion [Unknown]
  - Tearfulness [Unknown]
  - Device issue [Unknown]
